FAERS Safety Report 7215760-4 (Version None)
Quarter: 2011Q1

REPORT INFORMATION
  Report Type: 
  Country: None (occurrence: None)
  Receive Date: 20110107
  Receipt Date: 20110103
  Transmission Date: 20110831
  Serious: Yes (Other)
  Sender: FDA-Public Use
  Company Number: BR-PFIZER INC-2010129886

PATIENT
  Age: 51 Year
  Sex: Female
  Weight: 74 kg

DRUGS (10)
  1. ATENOLOL [Concomitant]
     Indication: HYPERTENSION
     Dosage: 50 MG, UNK
     Dates: start: 20000101
  2. CHAMPIX [Suspect]
     Indication: TOBACCO USER
     Dosage: UNK
     Route: 048
     Dates: end: 20100101
  3. ALPRAZOLAM [Interacting]
     Dosage: 0.25 MG, UNK
     Dates: start: 20100401, end: 20101007
  4. PANTOPRAZOLE [Concomitant]
     Indication: GASTRITIS
     Dosage: UNK
     Dates: start: 20090901
  5. ALPRAZOLAM [Interacting]
     Indication: POOR QUALITY SLEEP
     Dosage: 0.5 MG, UNK
     Route: 048
     Dates: start: 20090901
  6. COVERSYL PLUS [Concomitant]
     Indication: HYPERTENSION
     Dosage: UNK
     Dates: start: 20090901
  7. AMLODIPINE BESILATE [Concomitant]
     Indication: HYPERTENSION
     Dosage: 25 MG, UNK
     Dates: start: 20090901
  8. CHAMPIX [Interacting]
     Dosage: 1 MG, 2X/DAY (EVERY 12 HOURS)
     Route: 048
     Dates: start: 20100101, end: 20101201
  9. METFORMIN [Concomitant]
     Indication: DIABETES MELLITUS
     Dosage: 850 MG, UNK
     Dates: start: 20090901
  10. SIMVASTATIN [Concomitant]
     Indication: BLOOD CHOLESTEROL
     Dosage: 20 MG, UNK
     Dates: start: 20090901

REACTIONS (9)
  - DEPRESSION [None]
  - NAUSEA [None]
  - ASTHENIA [None]
  - APATHY [None]
  - DISORIENTATION [None]
  - DRUG INTERACTION [None]
  - CONFUSIONAL STATE [None]
  - PANIC REACTION [None]
  - AGGRESSION [None]
